FAERS Safety Report 4492707-5 (Version None)
Quarter: 2004Q4

REPORT INFORMATION
  Report Type: 
  Country: None (occurrence: None)
  Receive Date: 20041102
  Receipt Date: 20041102
  Transmission Date: 20050328
  Serious: Yes (Hospitalization)
  Sender: FDA-Public Use
  Company Number: None

PATIENT
  Age: 55 Year
  Sex: Male

DRUGS (1)
  1. LISINOPRIL [Suspect]
     Dosage: 20 MG Q DAY ORAL
     Route: 048
     Dates: start: 19960901, end: 20041030

REACTIONS (9)
  - CHOKING [None]
  - DENTAL CARIES [None]
  - DYSPHAGIA [None]
  - DYSPNOEA [None]
  - LYMPHADENOPATHY [None]
  - OROPHARYNGEAL SWELLING [None]
  - SWELLING [None]
  - SWELLING FACE [None]
  - TOOTH INFECTION [None]
